FAERS Safety Report 9353275 (Version 1)
Quarter: 2013Q2

REPORT INFORMATION
  Report Type: Spontaneous
  Country: US (occurrence: None)
  Receive Date: 20130617
  Receipt Date: 20130617
  Transmission Date: 20140414
  Serious: Yes (Life-Threatening, Hospitalization)
  Sender: FDA-Public Use
  Company Number: None

PATIENT
  Age: 73 Year
  Sex: Male
  Weight: 92.7 kg

DRUGS (1)
  1. CEFAZOLIN [Suspect]
     Indication: INTRAOPERATIVE CARE
     Dosage: 2 GM TID IV
     Route: 042
     Dates: start: 20130222, end: 20130223

REACTIONS (4)
  - Thrombocytopenia [None]
  - Haemorrhage [None]
  - Procedural haemorrhage [None]
  - Injection site haematoma [None]
